FAERS Safety Report 15159078 (Version 4)
Quarter: 2018Q3

REPORT INFORMATION
  Report Type: Report from Study
  Country: DE (occurrence: DE)
  Receive Date: 20180718
  Receipt Date: 20180904
  Transmission Date: 20181010
  Serious: Yes (Life-Threatening, Hospitalization)
  Sender: FDA-Public Use
  Company Number: DE-PFIZER INC-2018286740

PATIENT
  Age: 77 Year
  Sex: Female

DRUGS (28)
  1. DIAZEPAM. [Concomitant]
     Active Substance: DIAZEPAM
     Dosage: 10 MG, 1X/DAY
     Route: 048
  2. ANAFRANIL [Concomitant]
     Active Substance: CLOMIPRAMINE HYDROCHLORIDE
     Dosage: UNK
  3. VALSARTAN. [Concomitant]
     Active Substance: VALSARTAN
     Indication: HYPERTENSION
     Dosage: 160 MG, 1X/DAY
     Route: 048
     Dates: start: 20140926
  4. PACLITAXEL. [Suspect]
     Active Substance: PACLITAXEL
     Dosage: 308 MG, SAME DOSE ON 27/NOV/2013, UNK
     Route: 042
     Dates: start: 20131106, end: 20131106
  5. AVASTIN [Suspect]
     Active Substance: BEVACIZUMAB
     Dosage: 1020 MG, EVERY 3 WEEKS
     Route: 042
     Dates: start: 20131016
  6. AVASTIN [Suspect]
     Active Substance: BEVACIZUMAB
     Dosage: 1040 MG, EVERY3 WEEKS
     Route: 042
     Dates: start: 20131106
  7. FELODIPIN [Concomitant]
     Active Substance: FELODIPINE
     Dosage: 10 MG, UNK
     Route: 048
     Dates: start: 20140926
  8. SPASMEX [Concomitant]
     Indication: INCONTINENCE
     Dosage: UNK
     Route: 048
     Dates: start: 201307
  9. PACLITAXEL. [Suspect]
     Active Substance: PACLITAXEL
     Indication: OVARIAN CANCER
     Dosage: 304 MG,304?308 MG, SAME DOSE ON 04/SEP/2013, EVERY 3 WEEKS
     Route: 042
     Dates: start: 20130814, end: 20131127
  10. AVASTIN [Suspect]
     Active Substance: BEVACIZUMAB
     Dosage: 1000 MG, UNK
     Route: 042
     Dates: start: 20131218
  11. AVASTIN [Suspect]
     Active Substance: BEVACIZUMAB
     Dosage: 998 MG EVERY 3 WEEKS
     Route: 042
     Dates: start: 20140129
  12. AVASTIN [Suspect]
     Active Substance: BEVACIZUMAB
     Dosage: 1050 MG, EVERY 3 WEEKS
     Route: 042
     Dates: start: 20140918, end: 20140918
  13. CARBOPLATIN. [Concomitant]
     Active Substance: CARBOPLATIN
     Indication: OVARIAN CANCER
     Dosage: 420 MG, EVERY 3 WEEKS
     Route: 042
     Dates: start: 20130814, end: 20130814
  14. FELODIPIN [Concomitant]
     Active Substance: FELODIPINE
     Indication: HYPERTENSION
     Dosage: UNK
     Route: 048
  15. PACLITAXEL. [Suspect]
     Active Substance: PACLITAXEL
     Dosage: 306 MG, SAME DOSE ON 16/OCT/2013, UNK
     Route: 042
     Dates: start: 20130925, end: 20130925
  16. AVASTIN [Suspect]
     Active Substance: BEVACIZUMAB
     Indication: OVARIAN CANCER
     Dosage: 1000 MG, UNK
     Route: 042
     Dates: start: 20130904, end: 20130904
  17. BAYOTENSIN [Concomitant]
     Active Substance: NITRENDIPINE
     Indication: HYPERTENSION
     Dosage: 5 MG, 1X/DAY
     Route: 042
     Dates: start: 20140625
  18. BAYOTENSIN [Concomitant]
     Active Substance: NITRENDIPINE
     Dosage: 10 MG, AMPOULE
     Route: 048
     Dates: start: 20140423, end: 20140423
  19. CARBOPLATIN. [Concomitant]
     Active Substance: CARBOPLATIN
     Dosage: 425 MG, UNK (SAME DOSE ON 06/NOV/2013)
     Route: 065
     Dates: start: 20130925, end: 20130925
  20. CARBOPLATIN. [Concomitant]
     Active Substance: CARBOPLATIN
     Dosage: 390 MG, UNK
     Route: 065
     Dates: start: 20131127, end: 20131127
  21. RAMIPRIL. [Concomitant]
     Active Substance: RAMIPRIL
     Indication: HYPERTENSION
     Dosage: 5 MG, UNK
     Route: 048
     Dates: start: 20140926
  22. AVASTIN [Suspect]
     Active Substance: BEVACIZUMAB
     Dosage: 1060 MG, UNK
     Route: 042
     Dates: start: 20140827, end: 20140827
  23. CARBOPLATIN. [Concomitant]
     Active Substance: CARBOPLATIN
     Dosage: 465 MG EVERY 3 WEEKS
     Route: 042
     Dates: start: 20131016, end: 20131016
  24. FERRO SANOL [Concomitant]
     Active Substance: FERROUS GLYCINE SULFATE
     Indication: DEPRESSION
     Dosage: 50 MG, 1X/DAY
     Route: 048
  25. MCP [Concomitant]
     Active Substance: METOCLOPRAMIDE HYDROCHLORIDE
     Dosage: DROPS
     Route: 048
  26. CLONIDIN [Concomitant]
     Active Substance: CLONIDINE
     Indication: HYPERTENSION
     Dosage: 0.5 DF, ONCE
     Route: 058
     Dates: start: 20130925, end: 20130925
  27. CARBOPLATIN. [Concomitant]
     Active Substance: CARBOPLATIN
     Dosage: 465 MG, UNK (SAME DOSE ON 16/NOV/2013)
     Dates: start: 20130904, end: 20130904
  28. CARBOPLATIN. [Concomitant]
     Active Substance: CARBOPLATIN
     Dosage: 425 MG, EVERY 3 WEEKS
     Dates: start: 20131106, end: 20131106

REACTIONS (18)
  - Hypoxia [Recovered/Resolved]
  - Pneumonia aspiration [Recovered/Resolved]
  - Memory impairment [Not Recovered/Not Resolved]
  - Paraesthesia [Not Recovered/Not Resolved]
  - Bone pain [Recovered/Resolved]
  - Pain in extremity [Recovered/Resolved]
  - Haemoglobin decreased [Not Recovered/Not Resolved]
  - Anaemia [Recovered/Resolved]
  - Cerebral infarction [Recovered/Resolved with Sequelae]
  - Aphasia [Recovering/Resolving]
  - Dysgeusia [Recovered/Resolved]
  - Hemiparesis [Recovering/Resolving]
  - Hypercholesterolaemia [Not Recovered/Not Resolved]
  - Cardiovascular disorder [Not Recovered/Not Resolved]
  - Aspiration [Recovered/Resolved]
  - Dizziness [Not Recovered/Not Resolved]
  - Asphyxia [Recovered/Resolved]
  - Nausea [Not Recovered/Not Resolved]

NARRATIVE: CASE EVENT DATE: 201309
